FAERS Safety Report 23823309 (Version 1)
Quarter: 2024Q2

REPORT INFORMATION
  Report Type: Spontaneous
  Country: CN (occurrence: None)
  Receive Date: 20240507
  Receipt Date: 20240507
  Transmission Date: 20240716
  Serious: Yes (Other)
  Sender: FDA-Public Use
  Company Number: 2024A104017

PATIENT
  Age: 57 Year
  Sex: Male
  Weight: 90 kg

DRUGS (3)
  1. BUDESONIDE [Suspect]
     Active Substance: BUDESONIDE
     Indication: Cerebral infarction
     Route: 055
     Dates: start: 20240310, end: 20240310
  2. TERBUTALINE [Suspect]
     Active Substance: TERBUTALINE
     Indication: Cerebral infarction
     Route: 055
     Dates: start: 20240310, end: 20240310
  3. ACETYLCYSTEINE [Suspect]
     Active Substance: ACETYLCYSTEINE
     Indication: Cerebral infarction
     Route: 055
     Dates: start: 20240310, end: 20240310

REACTIONS (1)
  - Cardiac flutter [Recovering/Resolving]

NARRATIVE: CASE EVENT DATE: 20240310
